FAERS Safety Report 10045029 (Version 1)
Quarter: 2014Q1

REPORT INFORMATION
  Report Type: Spontaneous
  Country: JP (occurrence: JP)
  Receive Date: 20140328
  Receipt Date: 20140328
  Transmission Date: 20141002
  Serious: Yes (Death, Other)
  Sender: FDA-Public Use
  Company Number: PHHY2014JP033913

PATIENT
  Age: 84 Year
  Sex: Female

DRUGS (3)
  1. METHOTREXATE [Suspect]
     Indication: RHEUMATOID ARTHRITIS
     Dosage: 5 MG, PER WEEK
  2. PREDNISOLONE [Suspect]
     Indication: RHEUMATOID ARTHRITIS
     Dosage: 5 MG, PER DAY
  3. MIZORIBINE [Suspect]
     Indication: RHEUMATOID ARTHRITIS
     Dosage: 100 MG, PER DAY

REACTIONS (11)
  - Death [Fatal]
  - Blister [Unknown]
  - Ulcer [Unknown]
  - Lymphocyte morphology abnormal [Recovering/Resolving]
  - White blood cell count decreased [Unknown]
  - Skin lesion [Not Recovered/Not Resolved]
  - Gangrene [Unknown]
  - Herpes zoster disseminated [Unknown]
  - Viraemia [Unknown]
  - Anaemia [Unknown]
  - Haemorrhage [Unknown]
